FAERS Safety Report 4747529-4 (Version None)
Quarter: 2005Q3

REPORT INFORMATION
  Report Type: 
  Country: None (occurrence: None)
  Receive Date: 20050817
  Receipt Date: 20050817
  Transmission Date: 20060218
  Serious: Yes (Other)
  Sender: FDA-Public Use
  Company Number: None

PATIENT
  Sex: Female
  Weight: 102.0593 kg

DRUGS (8)
  1. NARDIL [Suspect]
     Indication: AGORAPHOBIA
     Dosage: 30 TO 105MG DAILY 3 TO 5 X DAILY ORAL
     Route: 048
     Dates: start: 19931101, end: 20000115
  2. NARDIL [Suspect]
     Indication: DEPRESSION
     Dosage: 30 TO 105MG DAILY 3 TO 5 X DAILY ORAL
     Route: 048
     Dates: start: 19931101, end: 20000115
  3. NARDIL [Suspect]
     Indication: POST-TRAUMATIC STRESS DISORDER
     Dosage: 30 TO 105MG DAILY 3 TO 5 X DAILY ORAL
     Route: 048
     Dates: start: 19931101, end: 20000115
  4. NARDIL [Suspect]
     Indication: SOCIAL PHOBIA
     Dosage: 30 TO 105MG DAILY 3 TO 5 X DAILY ORAL
     Route: 048
     Dates: start: 19931101, end: 20000115
  5. NARDIL [Suspect]
     Indication: AGORAPHOBIA
     Dosage: 30 TO 105MG DAILY 3 TO 5 X DAILY ORAL
     Route: 048
     Dates: start: 20050201, end: 20050817
  6. NARDIL [Suspect]
     Indication: DEPRESSION
     Dosage: 30 TO 105MG DAILY 3 TO 5 X DAILY ORAL
     Route: 048
     Dates: start: 20050201, end: 20050817
  7. NARDIL [Suspect]
     Indication: POST-TRAUMATIC STRESS DISORDER
     Dosage: 30 TO 105MG DAILY 3 TO 5 X DAILY ORAL
     Route: 048
     Dates: start: 20050201, end: 20050817
  8. NARDIL [Suspect]
     Indication: SOCIAL PHOBIA
     Dosage: 30 TO 105MG DAILY 3 TO 5 X DAILY ORAL
     Route: 048
     Dates: start: 20050201, end: 20050817

REACTIONS (8)
  - ANGINA PECTORIS [None]
  - ANXIETY [None]
  - DIARRHOEA [None]
  - DRUG EFFECT DECREASED [None]
  - GASTRIC DISORDER [None]
  - GASTROOESOPHAGEAL REFLUX DISEASE [None]
  - PHARMACEUTICAL PRODUCT COMPLAINT [None]
  - TREMOR [None]
